FAERS Safety Report 21510377 (Version 1)
Quarter: 2022Q4

REPORT INFORMATION
  Report Type: Spontaneous
  Country: US (occurrence: US)
  Receive Date: 20221026
  Receipt Date: 20221026
  Transmission Date: 20230113
  Serious: No
  Sender: FDA-Public Use
  Company Number: US-ALLERGAN-2202648US

PATIENT
  Age: 82 Year
  Sex: Male
  Weight: 87.982 kg

DRUGS (29)
  1. INFED [Suspect]
     Active Substance: IRON DEXTRAN
     Indication: Iron deficiency anaemia
     Dosage: 25 MG, SINGLE
     Route: 042
     Dates: start: 20220114, end: 20220114
  2. TYLENOL [Concomitant]
     Active Substance: ACETAMINOPHEN
  3. ASCORBIC ACID [Concomitant]
     Active Substance: ASCORBIC ACID
  4. ASPIRIN [Concomitant]
     Active Substance: ASPIRIN
     Dosage: 81 MG, QD
     Route: 048
  5. AZELASTINE [Concomitant]
     Active Substance: AZELASTINE
     Indication: Cardiac disorder
     Dosage: 81 MG, QD
  6. TRAMADOL [Concomitant]
     Active Substance: TRAMADOL
  7. BUSPIRONE [Concomitant]
     Active Substance: BUSPIRONE HYDROCHLORIDE
  8. CARVEDILOL [Concomitant]
     Active Substance: CARVEDILOL
  9. PLAVIX [Concomitant]
     Active Substance: CLOPIDOGREL BISULFATE
     Indication: Cardiac disorder
     Dosage: 75 MG, QD
     Route: 048
  10. VITAMIN B12 [HYDROXOCOBALAMIN ACETATE] [Concomitant]
  11. FEXOFENADINE [Concomitant]
     Active Substance: FEXOFENADINE HYDROCHLORIDE
  12. FINASTERIDE [Concomitant]
     Active Substance: FINASTERIDE
  13. FLUOCINONIDE [Concomitant]
     Active Substance: FLUOCINONIDE
  14. FLONASE [Concomitant]
     Active Substance: FLUTICASONE PROPIONATE
  15. FUROSEMIDE [Concomitant]
     Active Substance: FUROSEMIDE
  16. GLUCOSAMINE [Concomitant]
     Active Substance: GLUCOSAMINE
  17. LISINOPRIL [Concomitant]
     Active Substance: LISINOPRIL
  18. MELATONIN [Concomitant]
     Active Substance: MELATONIN
  19. SINGULAIR [Concomitant]
     Active Substance: MONTELUKAST SODIUM
  20. VITAMINS [Concomitant]
     Active Substance: VITAMINS
  21. SODIUM CHLORIDE [Concomitant]
     Active Substance: SODIUM CHLORIDE
  22. NITROFURANTOIN [Concomitant]
     Active Substance: NITROFURANTOIN
  23. FISH OIL [Concomitant]
     Active Substance: FISH OIL
  24. OMEPRAZOLE [Concomitant]
     Active Substance: OMEPRAZOLE
  25. PRAMIPEXOLE [Concomitant]
     Active Substance: PRAMIPEXOLE
  26. ROSUVASTATIN [Concomitant]
     Active Substance: ROSUVASTATIN
     Indication: Cardiac disorder
     Dosage: 20 MG
     Route: 048
  27. Sennakot-S [Concomitant]
  28. TRAZODONE [Concomitant]
     Active Substance: TRAZODONE HYDROCHLORIDE
  29. OXYGEN [Concomitant]
     Active Substance: OXYGEN

REACTIONS (4)
  - Anxiety [Recovered/Resolved]
  - Feeling cold [Recovered/Resolved]
  - Chills [Recovered/Resolved]
  - Dyspnoea [Recovered/Resolved]

NARRATIVE: CASE EVENT DATE: 20220114
